FAERS Safety Report 11857173 (Version 1)
Quarter: 2015Q4

REPORT INFORMATION
  Report Type: Spontaneous
  Country: FR (occurrence: FR)
  Receive Date: 20151221
  Receipt Date: 20151221
  Transmission Date: 20160305
  Serious: Yes (Hospitalization, Other)
  Sender: FDA-Public Use
  Company Number: FR-MEDTRONIC-1045734

PATIENT
  Age: 57 Year
  Sex: Male

DRUGS (1)
  1. BACLOFEN. [Suspect]
     Active Substance: BACLOFEN
     Indication: ALCOHOLISM
     Route: 065

REACTIONS (7)
  - Dizziness [Unknown]
  - Vertigo [Recovered/Resolved]
  - Fall [Recovered/Resolved]
  - Somnolence [Unknown]
  - Muscular weakness [Recovered/Resolved]
  - Insomnia [Unknown]
  - Dry mouth [Unknown]
